FAERS Safety Report 5393297-5 (Version None)
Quarter: 2007Q3

REPORT INFORMATION
  Report Type: 
  Country: None (occurrence: None)
  Receive Date: 20070723
  Receipt Date: 20070712
  Transmission Date: 20080115
  Serious: Yes (Other)
  Sender: FDA-Public Use
  Company Number: PHEH2006US09060

PATIENT
  Age: 17 Year
  Sex: Female
  Weight: 70.294 kg

DRUGS (7)
  1. EXJADE [Suspect]
     Indication: IRON OVERLOAD
     Route: 048
     Dates: start: 20060301, end: 20060601
  2. HYDROMORPHONE HCL [Concomitant]
     Dosage: UNK, PRN
  3. METHADONE HCL [Concomitant]
     Dosage: UNK, PRN
  4. FOLIC ACID [Concomitant]
     Dosage: 1 MG, UNK
     Route: 048
  5. ALBUTEROL [Concomitant]
     Dosage: UNK, PRN
  6. REGLAN [Concomitant]
     Dosage: UNK, PRN
  7. ADVAIR DISKUS 100/50 [Concomitant]
     Dosage: UNK, PRN

REACTIONS (7)
  - CAESAREAN SECTION [None]
  - DRUG EXPOSURE DURING PREGNANCY [None]
  - NORMAL NEWBORN [None]
  - PAIN [None]
  - PRE-ECLAMPSIA [None]
  - PREGNANCY INDUCED HYPERTENSION [None]
  - SICKLE CELL ANAEMIA WITH CRISIS [None]
